FAERS Safety Report 5147026-0 (Version None)
Quarter: 2006Q4

REPORT INFORMATION
  Report Type: 
  Country: None (occurrence: None)
  Receive Date: 20061109
  Receipt Date: 20061004
  Transmission Date: 20070319
  Serious: Yes (Hospitalization)
  Sender: FDA-Public Use
  Company Number: US-ELI_LILLY_AND_COMPANY-US200610000989

PATIENT
  Age: 81 Year
  Sex: Female

DRUGS (10)
  1. FORTEO [Suspect]
     Indication: OSTEOPOROSIS
     Dosage: UNK, UNK
     Dates: start: 20060926
  2. CYMBALTA [Suspect]
     Indication: DEPRESSION
     Dosage: 60 MG, DAILY (1/D)
     Dates: start: 20050101
  3. ADVAIR DISKUS 100/50 [Concomitant]
     Dosage: 1 D/F, 2/D
  4. SPIRIVA [Concomitant]
     Dosage: 18 UG, DAILY (1/D)
  5. NEXIUM [Concomitant]
     Dosage: 40 MG, DAILY (1/D)
  6. CALCIUM [Concomitant]
  7. VITAMIN CAP [Concomitant]
  8. WARFARIN SODIUM [Concomitant]
     Dosage: 5 MG, DAILY (1/D)
  9. ESZOPICLONE [Concomitant]
  10. OXYCONTIN [Concomitant]
     Dosage: 20 MG, 2/D

REACTIONS (7)
  - ABDOMINAL HERNIA REPAIR [None]
  - DRY EYE [None]
  - INJECTION SITE BRUISING [None]
  - MEMORY IMPAIRMENT [None]
  - PHARMACEUTICAL PRODUCT COMPLAINT [None]
  - SMALL INTESTINAL OBSTRUCTION [None]
  - WOUND INFECTION [None]
